FAERS Safety Report 8256692-2 (Version None)
Quarter: 2012Q2

REPORT INFORMATION
  Report Type: 
  Country: None (occurrence: None)
  Receive Date: 20120403
  Receipt Date: 20120326
  Transmission Date: 20120825
  Serious: Yes (Other)
  Sender: FDA-Public Use
  Company Number: US-JNJFOC-20111205354

PATIENT
  Sex: Female

DRUGS (4)
  1. TOPAMAX [Suspect]
     Indication: MIGRAINE
     Route: 048
     Dates: start: 20080101, end: 20091201
  2. CYMBALTA [Suspect]
     Indication: MIGRAINE
     Route: 048
  3. INDERAL [Suspect]
     Indication: MIGRAINE
     Route: 048
  4. LORTAB [Suspect]
     Indication: PRODUCT USED FOR UNKNOWN INDICATION
     Route: 065

REACTIONS (4)
  - ANXIETY [None]
  - EMOTIONAL DISORDER [None]
  - DEPRESSION [None]
  - MATERNAL EXPOSURE DURING PREGNANCY [None]
